FAERS Safety Report 5041706-3 (Version None)
Quarter: 2006Q2

REPORT INFORMATION
  Report Type: 
  Country: None (occurrence: None)
  Receive Date: 20060630
  Receipt Date: 20060623
  Transmission Date: 20061013
  Serious: Yes (Hospitalization)
  Sender: FDA-Public Use
  Company Number: E2090-00032-SPO-US

PATIENT
  Age: 41 Year
  Sex: Female

DRUGS (5)
  1. ZONEGRAN [Suspect]
     Indication: PARTIAL SEIZURES
     Dosage: 400 MG, ORAL
     Route: 048
     Dates: start: 20001001
  2. LAMICTAL [Concomitant]
  3. TEGRETOL [Concomitant]
  4. CLONAZEPAM [Concomitant]
  5. TRAZODONE HCL [Concomitant]

REACTIONS (12)
  - AMNESIA [None]
  - ANGER [None]
  - ASTHENIA [None]
  - COORDINATION ABNORMAL [None]
  - DIPLOPIA [None]
  - DYSARTHRIA [None]
  - DYSPNOEA [None]
  - FATIGUE [None]
  - HEADACHE [None]
  - HYPOAESTHESIA [None]
  - PARAESTHESIA [None]
  - TRANSIENT ISCHAEMIC ATTACK [None]
